FAERS Safety Report 19907926 (Version 1)
Quarter: 2021Q4

REPORT INFORMATION
  Report Type: Other
  Country: JP (occurrence: JP)
  Receive Date: 20211001
  Receipt Date: 20211001
  Transmission Date: 20220303
  Serious: Yes (Hospitalization)
  Sender: FDA-Public Use
  Company Number: JP-B.BRAUN MEDICAL INC.-2119057

PATIENT
  Age: 19 Year
  Sex: Female

DRUGS (1)
  1. HEPARIN SODIUM IN DEXTROSE [Suspect]
     Active Substance: HEPARIN SODIUM
     Indication: Prophylaxis

REACTIONS (2)
  - Intra-abdominal haemorrhage [None]
  - Drug ineffective [None]
